FAERS Safety Report 8893354 (Version 1)
Quarter: 2012Q4

REPORT INFORMATION
  Report Type: 
  Country: US (occurrence: US)
  Receive Date: 20121107
  Receipt Date: 20121107
  Transmission Date: 20130627
  Serious: No
  Sender: FDA-Public Use
  Company Number: US-AMGEN-USASP2011053373

PATIENT
  Age: 49 Year
  Sex: Female

DRUGS (17)
  1. ENBREL [Suspect]
     Indication: PRODUCT USED FOR UNKNOWN INDICATION
     Dosage: 50 mg, qwk
     Route: 058
  2. KLONOPIN [Concomitant]
     Dosage: 0.5 mg, UNK
  3. TOPAMAX [Concomitant]
     Dosage: 200 mg, UNK
  4. DICLOFENAC [Concomitant]
     Dosage: 50 mg, UNK
  5. FLUCONAZOLE [Concomitant]
     Dosage: 200 mg, UNK
  6. METHOTREXATE [Concomitant]
     Dosage: 2.5 mg, UNK
  7. PREDNISONE [Concomitant]
     Dosage: 1 mg, UNK
  8. LYRICA [Concomitant]
     Dosage: 100 mg, UNK
  9. TOPAMAX [Concomitant]
     Dosage: 200 mg, UNK
  10. TRAZODONE [Concomitant]
     Dosage: 50 mg, UNK
  11. OMEPRAZOLE [Concomitant]
     Dosage: 20 mg, UNK
  12. SIMVASTATIN [Concomitant]
     Dosage: 10 mg, UNK
  13. FOLIC ACID [Concomitant]
     Dosage: 1 mg, UNK
  14. ALBUTEROL                          /00139501/ [Concomitant]
     Dosage: 0.5 %, UNK
  15. VITAMIN D /00107901/ [Concomitant]
     Dosage: 50000 IU, UNK
  16. FISH OIL [Concomitant]
  17. POTASSIUM BICARBONATE [Concomitant]
     Dosage: 99 mg, UNK

REACTIONS (1)
  - Candidiasis [Recovered/Resolved]
